FAERS Safety Report 21227520 (Version 1)
Quarter: 2022Q3

REPORT INFORMATION
  Report Type: Spontaneous
  Country: CZ (occurrence: CZ)
  Receive Date: 20220818
  Receipt Date: 20220818
  Transmission Date: 20221027
  Serious: Yes (Hospitalization, Other)
  Sender: FDA-Public Use
  Company Number: None

PATIENT
  Age: 25 Year
  Sex: Female

DRUGS (16)
  1. IPRATROPIUM BROMIDE [Suspect]
     Active Substance: IPRATROPIUM BROMIDE
     Indication: Status asthmaticus
     Route: 055
  2. BISULEPIN [Suspect]
     Active Substance: BISULEPIN
     Indication: Status asthmaticus
     Dosage: 2 MG TWICE DAILY
     Route: 042
  3. ADRENALIN [Suspect]
     Active Substance: EPINEPHRINE
     Indication: Status asthmaticus
     Dosage: 10 UG
     Route: 065
  4. MAGNESIUM SULFATE [Suspect]
     Active Substance: MAGNESIUM SULFATE
     Indication: Status asthmaticus
     Route: 042
  5. METHYLPREDNISOLONE [Suspect]
     Active Substance: METHYLPREDNISOLONE
     Indication: Status asthmaticus
     Dosage: 1000 MG FOR 3 DAYS
     Route: 042
  6. METHYLPREDNISOLONE [Suspect]
     Active Substance: METHYLPREDNISOLONE
     Dosage: 60 MG FROM DAY 4
     Route: 042
  7. MONTELUKAST [Suspect]
     Active Substance: MONTELUKAST SODIUM
     Indication: Status asthmaticus
     Dosage: 10 MG PER DAY
     Route: 048
  8. ALBUTEROL [Suspect]
     Active Substance: ALBUTEROL
     Indication: Status asthmaticus
     Route: 055
  9. SEVOFLURANE [Suspect]
     Active Substance: SEVOFLURANE
     Indication: Status asthmaticus
     Route: 055
  10. TERBUTALINE [Suspect]
     Active Substance: TERBUTALINE
     Indication: Status asthmaticus
     Dosage: 2 MG/DAY
     Route: 042
  11. THEOPHYLLINE ANHYDROUS [Suspect]
     Active Substance: THEOPHYLLINE ANHYDROUS
     Indication: Status asthmaticus
     Dosage: 720 MG/DAY
     Route: 065
  12. SUFENTANIL [Concomitant]
     Active Substance: SUFENTANIL
     Indication: Sedation
     Dosage: 100 UG PER HOUR
     Route: 065
  13. CEFOTAXIME [Concomitant]
     Active Substance: CEFOTAXIME SODIUM
     Indication: Infection prophylaxis
     Dosage: 2 G EVERY 6 HRS
     Route: 065
  14. CLARITHROMYCIN [Concomitant]
     Active Substance: CLARITHROMYCIN
     Indication: Infection prophylaxis
     Dosage: 500 MG TWICE DAILY FOR 2 DAYS
     Route: 065
  15. KETAMINE [Concomitant]
     Active Substance: KETAMINE
     Indication: Sedation
     Dosage: 150 MG PER HOUR
     Route: 065
  16. RIBAVIRIN [Concomitant]
     Active Substance: RIBAVIRIN
     Dosage: 600 MG TWICE DAILY
     Route: 065

REACTIONS (2)
  - Status asthmaticus [Recovered/Resolved]
  - Drug ineffective [Recovered/Resolved]
